FAERS Safety Report 17684794 (Version 1)
Quarter: 2020Q2

REPORT INFORMATION
  Report Type: Spontaneous
  Country: US (occurrence: US)
  Receive Date: 20200419
  Receipt Date: 20200419
  Transmission Date: 20200714
  Serious: No
  Sender: FDA-Public Use
  Company Number: None

PATIENT
  Age: 44 Year
  Sex: Female
  Weight: 81 kg

DRUGS (1)
  1. COMPAZINE [Suspect]
     Active Substance: PROCHLORPERAZINE MALEATE
     Indication: NAUSEA
     Route: 048

REACTIONS (12)
  - Muscle disorder [None]
  - Abortion induced [None]
  - Nausea [None]
  - Drug hypersensitivity [None]
  - Musculoskeletal discomfort [None]
  - Maternal exposure during pregnancy [None]
  - Loss of personal independence in daily activities [None]
  - Pain [None]
  - Impaired driving ability [None]
  - Muscle twitching [None]
  - Jaw disorder [None]
  - Limb discomfort [None]

NARRATIVE: CASE EVENT DATE: 20021012
